FAERS Safety Report 12278376 (Version 2)
Quarter: 2016Q3

REPORT INFORMATION
  Report Type: Spontaneous
  Country: US (occurrence: US)
  Receive Date: 20160418
  Receipt Date: 20160829
  Transmission Date: 20161109
  Serious: Yes (Other)
  Sender: FDA-Public Use
  Company Number: US-BAYER-2016-072625

PATIENT
  Age: 27 Year
  Sex: Female
  Weight: 55.78 kg

DRUGS (1)
  1. MIRENA [Suspect]
     Active Substance: LEVONORGESTREL
     Indication: CONTRACEPTION
     Dosage: 20 MCG/24HR, CONT
     Route: 015

REACTIONS (5)
  - Haemorrhage in pregnancy [Not Recovered/Not Resolved]
  - Pregnancy with contraceptive device [Unknown]
  - Abortion spontaneous [None]
  - Drug ineffective [None]
  - Abdominal pain lower [Unknown]

NARRATIVE: CASE EVENT DATE: 20160312
